FAERS Safety Report 8506826-7 (Version None)
Quarter: 2012Q3

REPORT INFORMATION
  Report Type: 
  Country: None (occurrence: None)
  Receive Date: 20120712
  Receipt Date: 20120710
  Transmission Date: 20120928
  Serious: Yes (Hospitalization)
  Sender: FDA-Public Use
  Company Number: US-BRISTOL-MYERS SQUIBB COMPANY-15698103

PATIENT
  Age: 65 Year
  Sex: Male

DRUGS (6)
  1. MIRALAX [Concomitant]
     Dates: start: 20110304
  2. HYDROCORTISONE [Concomitant]
     Dates: start: 20110120
  3. ASCORBIC ACID [Concomitant]
  4. IPILIMUMAB [Suspect]
     Indication: MALIGNANT MELANOMA
     Route: 042
     Dates: start: 20110214, end: 20110328
  5. VICODIN [Concomitant]
     Dates: start: 20110304
  6. MULTI-VITAMINS [Concomitant]

REACTIONS (7)
  - HYPOTENSION [None]
  - INTESTINAL OBSTRUCTION [None]
  - SEPTIC SHOCK [None]
  - ATRIAL FLUTTER [None]
  - COLITIS [None]
  - ANAEMIA [None]
  - INTESTINAL PERFORATION [None]
